FAERS Safety Report 21464998 (Version 1)
Quarter: 2022Q4

REPORT INFORMATION
  Report Type: Spontaneous
  Country: US (occurrence: US)
  Receive Date: 20221017
  Receipt Date: 20221017
  Transmission Date: 20230112
  Serious: No
  Sender: FDA-Public Use
  Company Number: US-BRISTOL-MYERS SQUIBB COMPANY-2022-121191

PATIENT
  Age: 53 Year
  Sex: Male
  Weight: 115.67 kg

DRUGS (1)
  1. POMALYST [Suspect]
     Active Substance: POMALIDOMIDE
     Indication: Plasma cell myeloma
     Dosage: FREQ: DAILY X21 DAYS OF 28 DAY
     Route: 048
     Dates: start: 202011

REACTIONS (2)
  - Fatigue [Unknown]
  - Muscle spasms [Unknown]
